FAERS Safety Report 9012588 (Version 3)
Quarter: 2013Q1

REPORT INFORMATION
  Report Type: Spontaneous
  Country: US (occurrence: US)
  Receive Date: 20130114
  Receipt Date: 20130314
  Transmission Date: 20140127
  Serious: Yes (Death, Hospitalization)
  Sender: FDA-Public Use
  Company Number: US-GLAXOSMITHKLINE-A1008256A

PATIENT
  Age: 61 Year
  Sex: Female
  Weight: 65.5 kg

DRUGS (1)
  1. BENLYSTA [Suspect]
     Indication: SYSTEMIC LUPUS ERYTHEMATOSUS
     Dosage: 120MG EVERY 28 DAYS
     Route: 042
     Dates: start: 201206, end: 20121112

REACTIONS (9)
  - Brain death [Unknown]
  - Brain hypoxia [Unknown]
  - Hip arthroplasty [Unknown]
  - Osteonecrosis [Unknown]
  - Hip surgery [Unknown]
  - Arthralgia [Unknown]
  - Cardiac arrest [Fatal]
  - Respiratory arrest [Fatal]
  - Depressed level of consciousness [Unknown]
